FAERS Safety Report 5239929-3 (Version None)
Quarter: 2007Q1

REPORT INFORMATION
  Report Type: 
  Country: None (occurrence: None)
  Receive Date: 20070216
  Receipt Date: 20070208
  Transmission Date: 20070707
  Serious: Yes (Life-Threatening, Hospitalization)
  Sender: FDA-Public Use
  Company Number: US-ABBOTT-07P-163-0358947-00

PATIENT
  Sex: Female
  Weight: 63.56 kg

DRUGS (8)
  1. DEPAKOTE [Suspect]
     Indication: BIPOLAR DISORDER
     Route: 048
     Dates: start: 19960101, end: 19980101
  2. DEPAKOTE [Suspect]
     Dates: start: 19981101, end: 19991228
  3. DEPAKOTE [Suspect]
     Dates: start: 20000901, end: 20020214
  4. DEPAKOTE [Suspect]
  5. DEPAKOTE ER [Suspect]
     Indication: DRUG USE FOR UNKNOWN INDICATION
     Dates: start: 20021101, end: 20060901
  6. DIPHENHYDRAMINE HYDROCHLORIDE [Suspect]
     Indication: DRUG USE FOR UNKNOWN INDICATION
     Dates: start: 19970101, end: 19970101
  7. DIPHENHYDRAMINE HYDROCHLORIDE [Suspect]
     Route: 048
  8. LAMOTRIGINE [Concomitant]
     Indication: BIPOLAR DISORDER
     Route: 048
     Dates: start: 20060901

REACTIONS (4)
  - AGGRESSION [None]
  - HOSTILITY [None]
  - SUICIDAL IDEATION [None]
  - SUICIDE ATTEMPT [None]
